FAERS Safety Report 12300115 (Version 1)
Quarter: 2016Q2

REPORT INFORMATION
  Report Type: Spontaneous
  Country: FR (occurrence: FR)
  Receive Date: 20160425
  Receipt Date: 20160425
  Transmission Date: 20160815
  Serious: Yes (Hospitalization)
  Sender: FDA-Public Use
  Company Number: FR-009507513-1604FRA014576

PATIENT
  Age: 28 Year
  Sex: Male

DRUGS (7)
  1. EMEND [Suspect]
     Active Substance: APREPITANT
     Dosage: 80 MG, QD
     Route: 048
     Dates: start: 20160324, end: 20160325
  2. FLUDARABINE PHOSPHATE. [Suspect]
     Active Substance: FLUDARABINE PHOSPHATE
     Indication: BONE MARROW TRANSPLANT
     Dosage: UNK
     Route: 042
     Dates: start: 20160323, end: 20160327
  3. ENDOXAN [Suspect]
     Active Substance: CYCLOPHOSPHAMIDE
     Indication: BONE MARROW TRANSPLANT
     Dosage: 60 MG/KG, UNKNOWN
     Route: 042
     Dates: start: 20160325, end: 20160326
  4. UROMITEXAN [Suspect]
     Active Substance: MESNA
     Indication: BONE MARROW TRANSPLANT
     Dosage: 72 MG/KG, UNKNOWN
     Route: 042
     Dates: start: 20160325, end: 20160326
  5. ZOPHREN (ONDANSETRON HYDROCHLORIDE) [Suspect]
     Active Substance: ONDANSETRON HYDROCHLORIDE
     Indication: PREMEDICATION
     Dosage: 8 MG, BID
     Route: 042
     Dates: start: 20160323, end: 20160327
  6. PRIMPERAN [Suspect]
     Active Substance: METOCLOPRAMIDE HYDROCHLORIDE
     Indication: PREMEDICATION
     Dosage: UNK
     Route: 042
     Dates: start: 20160323, end: 20160327
  7. EMEND [Suspect]
     Active Substance: APREPITANT
     Indication: PREMEDICATION
     Dosage: 125 MG, ONCE
     Route: 048
     Dates: start: 20160323, end: 20160323

REACTIONS (1)
  - Cystitis haemorrhagic [Not Recovered/Not Resolved]

NARRATIVE: CASE EVENT DATE: 20160329
